FAERS Safety Report 23962353 (Version 1)
Quarter: 2024Q2

REPORT INFORMATION
  Report Type: Spontaneous
  Country: US (occurrence: US)
  Receive Date: 20240611
  Receipt Date: 20240611
  Transmission Date: 20240716
  Serious: No
  Sender: FDA-Public Use
  Company Number: US-Blueprint Medicines Corporation-SP-US-2024-001187

PATIENT
  Age: 50 Year
  Sex: Female

DRUGS (3)
  1. AYVAKIT [Suspect]
     Active Substance: AVAPRITINIB
     Indication: Systemic mastocytosis
     Route: 065
     Dates: start: 202109
  2. AYVAKIT [Suspect]
     Active Substance: AVAPRITINIB
     Indication: Acute myeloid leukaemia
     Dosage: ALTERNATING 50MG/100MG
     Route: 065
     Dates: start: 2023
  3. AYVAKIT [Suspect]
     Active Substance: AVAPRITINIB
     Dosage: ALTERNATING 50MG/100MG
     Route: 065
     Dates: start: 2023

REACTIONS (2)
  - Face oedema [Unknown]
  - Seborrhoeic keratosis [Unknown]

NARRATIVE: CASE EVENT DATE: 20230101
